FAERS Safety Report 4535001-6 (Version None)
Quarter: 2004Q4

REPORT INFORMATION
  Report Type: 
  Country: None (occurrence: None)
  Receive Date: 20041214
  Receipt Date: 20040809
  Transmission Date: 20050328
  Serious: No
  Sender: FDA-Public Use
  Company Number: USA040874993

PATIENT
  Sex: Female

DRUGS (1)
  1. CIALIS [Suspect]
     Dates: start: 20040805

REACTIONS (2)
  - LIBIDO INCREASED [None]
  - MEDICATION ERROR [None]
